FAERS Safety Report 11212638 (Version 3)
Quarter: 2015Q4

REPORT INFORMATION
  Report Type: Spontaneous
  Country: AT (occurrence: AT)
  Receive Date: 20150623
  Receipt Date: 20151229
  Transmission Date: 20160304
  Serious: Yes (Life-Threatening, Hospitalization)
  Sender: FDA-Public Use
  Company Number: AT-TEVA-571272ISR

PATIENT
  Age: 84 Year
  Sex: Female

DRUGS (10)
  1. MIRTABENE [Suspect]
     Active Substance: MIRTAZAPINE
     Dates: start: 20150127, end: 20150202
  2. MIRTABENE [Suspect]
     Active Substance: MIRTAZAPINE
     Dates: start: 20150118, end: 20150126
  3. NOVALGIN [Suspect]
     Active Substance: METAMIZOLE SODIUM
     Dates: start: 20150123, end: 20150129
  4. TRAMAL RETARD [Concomitant]
     Active Substance: TRAMADOL
     Dosage: SINCE YEARS
     Dates: start: 20150119
  5. TIANEPTINE SODIUM [Concomitant]
     Active Substance: TIANEPTINE SODIUM
     Dates: start: 20150207
  6. TRAMAL RETARD [Concomitant]
     Active Substance: TRAMADOL
     Dosage: SINCE YEARS
     Dates: end: 20150118
  7. PANTOLOC [Concomitant]
     Active Substance: PANTOPRAZOLE SODIUM
     Dates: start: 20150123
  8. NOVALGIN [Suspect]
     Active Substance: METAMIZOLE SODIUM
     Dates: start: 20150130
  9. CALCIDURAN VIT. D3 [Concomitant]
     Dosage: SINCE YEARS
  10. TIANEPTINE SODIUM [Concomitant]
     Active Substance: TIANEPTINE SODIUM
     Dates: start: 20150206, end: 20150206

REACTIONS (1)
  - Electrocardiogram QT prolonged [Recovered/Resolved]

NARRATIVE: CASE EVENT DATE: 20150202
